FAERS Safety Report 20524119 (Version 1)
Quarter: 2022Q1

REPORT INFORMATION
  Report Type: Report from Study
  Country: US (occurrence: US)
  Receive Date: 20220228
  Receipt Date: 20220228
  Transmission Date: 20220423
  Serious: No
  Sender: FDA-Public Use
  Company Number: US-ORG100014127-2021001444

PATIENT
  Age: 30 Year
  Sex: Female

DRUGS (2)
  1. METOPIRONE [Suspect]
     Active Substance: METYRAPONE
     Dosage: 4 CAPS BID
     Route: 048
     Dates: start: 20201225
  2. Calcium citrate tablets [Concomitant]

REACTIONS (3)
  - Nausea [Unknown]
  - Dizziness [Unknown]
  - Off label use [Not Recovered/Not Resolved]

NARRATIVE: CASE EVENT DATE: 20201225
